FAERS Safety Report 7629944-4 (Version None)
Quarter: 2011Q3

REPORT INFORMATION
  Report Type: 
  Country: None (occurrence: None)
  Receive Date: 20110722
  Receipt Date: 20110713
  Transmission Date: 20111222
  Serious: Yes (Hospitalization)
  Sender: FDA-Public Use
  Company Number: AR-JNJFOC-20090702605

PATIENT
  Sex: Female
  Weight: 51 kg

DRUGS (33)
  1. GOLIMUMAB [Suspect]
     Route: 058
     Dates: start: 20090509
  2. RISEDRONATE SODIUM [Concomitant]
     Route: 048
     Dates: start: 20060822
  3. VENART [Concomitant]
     Route: 048
     Dates: start: 20081010
  4. GOLIMUMAB [Suspect]
     Route: 058
     Dates: start: 20080417
  5. GOLIMUMAB [Suspect]
     Route: 058
     Dates: start: 20080318
  6. GOLIMUMAB [Suspect]
     Route: 058
     Dates: start: 20080219
  7. ENALAPRIL MALEATE [Concomitant]
     Route: 048
     Dates: start: 20071220
  8. PLATSULA [Concomitant]
     Route: 061
     Dates: start: 20080513
  9. GOLIMUMAB [Suspect]
     Route: 058
     Dates: start: 20081218
  10. GOLIMUMAB [Suspect]
     Route: 058
     Dates: start: 20080707
  11. FOLIC ACID [Concomitant]
     Route: 048
     Dates: start: 20061104
  12. ASCORBIC ACID [Concomitant]
     Route: 048
     Dates: start: 20080421
  13. LEVOFLOXACIN [Concomitant]
     Route: 048
     Dates: start: 20080424
  14. ASPIRIN [Concomitant]
     Route: 048
     Dates: start: 20080428
  15. GOLIMUMAB [Suspect]
     Route: 058
     Dates: start: 20090609
  16. GOLIMUMAB [Suspect]
     Route: 058
     Dates: start: 20081023
  17. GOLIMUMAB [Suspect]
     Route: 058
     Dates: start: 20080805
  18. GOLIMUMAB [Suspect]
     Route: 058
     Dates: start: 20080520
  19. DAFLON [Concomitant]
     Route: 048
     Dates: start: 20090401
  20. GOLIMUMAB [Suspect]
     Route: 058
     Dates: start: 20090316
  21. GOLIMUMAB [Suspect]
     Route: 058
     Dates: start: 20080926
  22. GOLIMUMAB [Suspect]
     Route: 058
     Dates: start: 20080610
  23. GOLIMUMAB [Suspect]
     Route: 058
     Dates: start: 20080122
  24. GOLIMUMAB [Suspect]
     Route: 058
     Dates: start: 20061031
  25. MEPREDNISONA [Concomitant]
     Route: 048
     Dates: start: 20090316
  26. GOLIMUMAB [Suspect]
     Indication: RHEUMATOID ARTHRITIS
     Route: 058
     Dates: start: 20090217
  27. GOLIMUMAB [Suspect]
     Route: 058
     Dates: start: 20081125
  28. METHOTREXATE [Suspect]
     Indication: RHEUMATOID ARTHRITIS
     Route: 048
     Dates: start: 20080404, end: 20080613
  29. METHOTREXATE [Concomitant]
     Route: 048
     Dates: start: 20080707
  30. CALCIUM CITRATE [Concomitant]
     Route: 048
     Dates: start: 20060626
  31. GOLIMUMAB [Suspect]
     Route: 058
     Dates: start: 20090117
  32. GOLIMUMAB [Suspect]
     Route: 058
     Dates: start: 20090414
  33. DIPROSALIC [Concomitant]
     Route: 061
     Dates: start: 20081211

REACTIONS (1)
  - HERPES ZOSTER [None]
